FAERS Safety Report 13643820 (Version 1)
Quarter: 2017Q2

REPORT INFORMATION
  Report Type: Report from Study
  Country: US (occurrence: IN)
  Receive Date: 20170612
  Receipt Date: 20170612
  Transmission Date: 20170830
  Serious: Yes (Death, Hospitalization)
  Sender: FDA-Public Use
  Company Number: US-SUNOVION-2017SUN002413

PATIENT
  Age: 80 Year
  Sex: Male
  Weight: 56 kg

DRUGS (1)
  1. INDACATEROL AND GLYCOPYRROLATE [Suspect]
     Active Substance: GLYCOPYRROLATE\INDACATEROL MALEATE
     Indication: CHRONIC OBSTRUCTIVE PULMONARY DISEASE
     Dosage: (INDACATEROL 110 UG/GLYCOPYRRONIUM BROMIDE 50 UG), INHALATION
     Route: 055
     Dates: start: 20170529, end: 20170530

REACTIONS (2)
  - Seizure [Fatal]
  - Haematemesis [Fatal]

NARRATIVE: CASE EVENT DATE: 20170529
